FAERS Safety Report 6006663-1 (Version None)
Quarter: 2008Q4

REPORT INFORMATION
  Report Type: 
  Country: None (occurrence: None)
  Receive Date: 20081217
  Receipt Date: 20081204
  Transmission Date: 20090506
  Serious: Yes (Other)
  Sender: FDA-Public Use
  Company Number: JP-ELI_LILLY_AND_COMPANY-JP200812003457

PATIENT
  Age: 30 Year
  Sex: Female

DRUGS (3)
  1. HUMALOG [Suspect]
     Indication: TYPE 1 DIABETES MELLITUS
     Dosage: UNK, 4/D
     Route: 058
  2. HUMALOG [Suspect]
     Dosage: 28 IU, DAILY (1/D)
     Route: 058
  3. HUMALOG [Suspect]
     Dosage: 35 IU, DAILY (1/D)
     Route: 058

REACTIONS (6)
  - DIABETIC KETOACIDOSIS [None]
  - DRUG EXPOSURE DURING PREGNANCY [None]
  - HYPOGLYCAEMIA [None]
  - HYPOGLYCAEMIA UNAWARENESS [None]
  - HYPOGLYCAEMIC COMA [None]
  - RENAL DISORDER [None]
